FAERS Safety Report 12900506 (Version 1)
Quarter: 2016Q4

REPORT INFORMATION
  Report Type: Spontaneous
  Country: IT (occurrence: IT)
  Receive Date: 20161101
  Receipt Date: 20161101
  Transmission Date: 20170207
  Serious: Yes (Hospitalization)
  Sender: FDA-Public Use
  Company Number: IT-ALLERGAN-1674246US

PATIENT
  Age: 3 Day
  Sex: Male
  Weight: 3 kg

DRUGS (3)
  1. MEDROXYPROGESTERONE [Concomitant]
     Active Substance: MEDROXYPROGESTERONE
     Indication: MATERNAL EXPOSURE TIMING UNSPECIFIED
     Dosage: UNK
     Route: 064
  2. MECLON                             /01060301/ [Concomitant]
     Indication: MATERNAL EXPOSURE TIMING UNSPECIFIED
     Dosage: UNK
     Route: 064
  3. FOSFOMYCIN TROMETHAMINE - BP [Suspect]
     Active Substance: FOSFOMYCIN TROMETHAMINE
     Indication: MATERNAL EXPOSURE TIMING UNSPECIFIED
     Dosage: 3 G, SINGLE
     Route: 064
     Dates: start: 20160915, end: 20160915

REACTIONS (3)
  - Foetal exposure during pregnancy [Recovered/Resolved]
  - Vomiting [Recovered/Resolved]
  - Hypertransaminasaemia [Recovered/Resolved]

NARRATIVE: CASE EVENT DATE: 20160915
